FAERS Safety Report 11306808 (Version 1)
Quarter: 2015Q3

REPORT INFORMATION
  Report Type: Spontaneous
  Country: US (occurrence: US)
  Receive Date: 20150723
  Receipt Date: 20150723
  Transmission Date: 20151125
  Serious: No
  Sender: FDA-Public Use
  Company Number: US-ASTELLAS-2015US015864

PATIENT
  Age: 40 Year
  Sex: Male

DRUGS (1)
  1. MYRBETRIQ [Suspect]
     Active Substance: MIRABEGRON
     Indication: URINARY INCONTINENCE
     Route: 065
     Dates: start: 2007

REACTIONS (3)
  - Depressed mood [Unknown]
  - Malaise [Not Recovered/Not Resolved]
  - Drug effect variable [Unknown]

NARRATIVE: CASE EVENT DATE: 201505
